FAERS Safety Report 8161426-6 (Version None)
Quarter: 2012Q1

REPORT INFORMATION
  Report Type: 
  Country: None (occurrence: None)
  Receive Date: 20120224
  Receipt Date: 20120215
  Transmission Date: 20120608
  Serious: Yes (Death)
  Sender: FDA-Public Use
  Company Number: ES-CELGENEUS-144-50794-11122773

PATIENT
  Sex: Male
  Weight: 74 kg

DRUGS (1)
  1. VIDAZA [Suspect]
     Dosage: 140 MILLIGRAM
     Route: 065
     Dates: start: 20100419, end: 20100505

REACTIONS (1)
  - INTESTINAL ISCHAEMIA [None]
